FAERS Safety Report 24079887 (Version 4)
Quarter: 2024Q3

REPORT INFORMATION
  Report Type: Spontaneous
  Country: US (occurrence: US)
  Receive Date: 20240711
  Receipt Date: 20240920
  Transmission Date: 20241016
  Serious: No
  Sender: PFIZER
  Company Number: US-PFIZER INC-PV202400090345

PATIENT
  Age: 48 Year
  Sex: Male

DRUGS (1)
  1. TUKYSA [Suspect]
     Active Substance: TUCATINIB
     Dosage: 150 MG TAKE 1 TABLET TWICE A DAY, AND 50MG TAKE 1 TABLET TWICE A DAY

REACTIONS (2)
  - Liver function test increased [Unknown]
  - Off label use [Unknown]
